FAERS Safety Report 14572152 (Version 2)
Quarter: 2018Q1

REPORT INFORMATION
  Report Type: Report from Study
  Country: AU (occurrence: AU)
  Receive Date: 20180226
  Receipt Date: 20180313
  Transmission Date: 20180509
  Serious: Yes (Other)
  Sender: FDA-Public Use
  Company Number: AU-MYLANLABS-2018M1011867

PATIENT
  Age: 56 Year
  Sex: Male

DRUGS (1)
  1. CLOZARIL [Suspect]
     Active Substance: CLOZAPINE
     Indication: SCHIZOPHRENIA
     Dosage: 300 MG, PM
     Route: 048
     Dates: start: 20000509

REACTIONS (7)
  - Blood triglycerides increased [Recovered/Resolved]
  - Electrocardiogram QT prolonged [Not Recovered/Not Resolved]
  - Sinus tachycardia [Recovering/Resolving]
  - Bundle branch block right [Not Recovered/Not Resolved]
  - Electrocardiogram T wave inversion [Not Recovered/Not Resolved]
  - Blood cholesterol decreased [Unknown]
  - Blood creatine phosphokinase increased [Recovering/Resolving]

NARRATIVE: CASE EVENT DATE: 20150921
